FAERS Safety Report 5397862-0 (Version None)
Quarter: 2007Q3

REPORT INFORMATION
  Report Type: 
  Country: None (occurrence: None)
  Receive Date: 20070726
  Receipt Date: 20070627
  Transmission Date: 20080115
  Serious: Yes (Other)
  Sender: FDA-Public Use
  Company Number: B0452207A

PATIENT
  Age: 70 Year
  Sex: Male
  Weight: 64 kg

DRUGS (2)
  1. NIQUITIN CQ [Suspect]
     Route: 065
     Dates: start: 20060816, end: 20060827
  2. NO CONCURRENT MEDICATION [Concomitant]

REACTIONS (7)
  - ACNE [None]
  - NAUSEA [None]
  - OEDEMA PERIPHERAL [None]
  - PARAESTHESIA [None]
  - PRURITUS [None]
  - RASH [None]
  - SKIN DISCOLOURATION [None]
